FAERS Safety Report 7990035-4 (Version None)
Quarter: 2011Q4

REPORT INFORMATION
  Report Type: 
  Country: None (occurrence: None)
  Receive Date: 20111219
  Receipt Date: 20110210
  Transmission Date: 20120403
  Serious: No
  Sender: FDA-Public Use
  Company Number: US-ASTRAZENECA-2011SE08185

PATIENT
  Age: 42 Year
  Sex: Female
  Weight: 108.9 kg

DRUGS (9)
  1. PLAVIX [Concomitant]
  2. CELEXA [Concomitant]
  3. GLYCOSIDE [Concomitant]
  4. CRESTOR [Suspect]
     Indication: HYPERCHOLESTEROLAEMIA
     Route: 048
     Dates: start: 20100101
  5. ASPIRIN [Concomitant]
  6. VITAMIN TAB [Concomitant]
  7. CRESTOR [Suspect]
     Route: 048
     Dates: end: 20100601
  8. CRESTOR [Suspect]
     Route: 048
  9. FISH OIL [Concomitant]

REACTIONS (5)
  - DRUG INEFFECTIVE [None]
  - MUSCLE SPASMS [None]
  - WEIGHT DECREASED [None]
  - DIARRHOEA [None]
  - BLOOD CHOLESTEROL INCREASED [None]
